FAERS Safety Report 4861276-X (Version None)
Quarter: 2005Q4

REPORT INFORMATION
  Report Type: 
  Country: None (occurrence: None)
  Receive Date: 20051220
  Receipt Date: 20051005
  Transmission Date: 20060501
  Serious: Yes (Hospitalization, Other)
  Sender: FDA-Public Use
  Company Number: US-MERCK-0510USA05338

PATIENT
  Age: 63 Year
  Sex: Male
  Weight: 82 kg

DRUGS (8)
  1. VIOXX [Suspect]
     Indication: ARTHRITIS
     Route: 048
     Dates: start: 19990101, end: 20040101
  2. PREVACID [Concomitant]
     Route: 065
  3. FLOVENT [Concomitant]
     Route: 065
  4. PREDNISONE [Concomitant]
     Route: 065
  5. CLANTIN [Concomitant]
     Route: 065
  6. ALBUTEROL [Concomitant]
     Route: 065
  7. PROPOXYPHENE NAPSYLATE [Concomitant]
     Route: 065
  8. COLCHICINE [Concomitant]
     Route: 065

REACTIONS (8)
  - ACUTE CORONARY SYNDROME [None]
  - ASTHMA [None]
  - ATRIOVENTRICULAR BLOCK FIRST DEGREE [None]
  - CEREBROVASCULAR ACCIDENT [None]
  - CORONARY ARTERY DISEASE [None]
  - HYPERLIPIDAEMIA [None]
  - MYOCARDIAL INFARCTION [None]
  - SINUSITIS [None]
